FAERS Safety Report 5599769-2 (Version None)
Quarter: 2008Q1

REPORT INFORMATION
  Report Type: 
  Country: None (occurrence: None)
  Receive Date: 20080118
  Receipt Date: 20080103
  Transmission Date: 20080703
  Serious: Yes (Congenital Anomaly)
  Sender: FDA-Public Use
  Company Number: 100#03#2007-00689

PATIENT
  Sex: Male

DRUGS (6)
  1. LAMOTRIGINE [Suspect]
     Indication: PARTIAL SEIZURES
     Dosage: 300 MG ONCE DAILY TRANSPLACENTAL
     Route: 064
  2. CARBAMAZEPINE [Suspect]
     Indication: PARTIAL SEIZURES
     Dosage: 400 MG ONCE DAILY TRANSPLACENTAL
     Route: 064
  3. CLOBAZAM (CLOBAZAM) (CLOBAZAM) [Suspect]
     Indication: DRUG EXPOSURE DURING PREGNANCY
     Dosage: 10 MG ONCE DAILY TRANSPLACENTAL
     Route: 064
  4. CLOBAZAM (CLOBAZAM) (CLOBAZAM) [Suspect]
     Indication: PARTIAL SEIZURES
     Dosage: 10 MG ONCE DAILY TRANSPLACENTAL
     Route: 064
  5. KEPPRA [Suspect]
     Indication: DRUG EXPOSURE DURING PREGNANCY
     Dosage: 3000 MG ONCE DAILY TRANSPLACENTAL
     Route: 064
  6. KEPPRA [Suspect]
     Indication: PARTIAL SEIZURES
     Dosage: 3000 MG ONCE DAILY TRANSPLACENTAL
     Route: 064

REACTIONS (3)
  - CAESAREAN SECTION [None]
  - DRUG EXPOSURE DURING PREGNANCY [None]
  - PILONIDAL CYST CONGENITAL [None]
